FAERS Safety Report 5585239-4 (Version None)
Quarter: 2008Q1

REPORT INFORMATION
  Report Type: 
  Country: None (occurrence: None)
  Receive Date: 20080108
  Receipt Date: 20080108
  Transmission Date: 20080703
  Serious: No
  Sender: FDA-Public Use
  Company Number: None

PATIENT
  Age: 45 Year
  Sex: Male

DRUGS (9)
  1. ZANTAC 150 [Suspect]
     Dates: start: 20060719, end: 20060720
  2. PROTONIX [Concomitant]
  3. COUMADIN [Concomitant]
  4. CLARINEX [Concomitant]
  5. WELLBUTRIN XL [Concomitant]
  6. GABITRIL [Concomitant]
  7. THYROID TAB [Concomitant]
  8. SINGULAIR [Concomitant]
  9. PROSPEROUS FARM AC FORMULA [Concomitant]

REACTIONS (7)
  - ABDOMINAL PAIN [None]
  - ALANINE AMINOTRANSFERASE INCREASED [None]
  - ASPARTATE AMINOTRANSFERASE INCREASED [None]
  - BLOOD BILIRUBIN INCREASED [None]
  - LIVER INJURY [None]
  - PRURITUS [None]
  - PYREXIA [None]
